FAERS Safety Report 6959009-6 (Version None)
Quarter: 2010Q3

REPORT INFORMATION
  Report Type: 
  Country: None (occurrence: None)
  Receive Date: 20100831
  Receipt Date: 20100823
  Transmission Date: 20110219
  Serious: Yes (Death)
  Sender: FDA-Public Use
  Company Number: IT-ELI_LILLY_AND_COMPANY-IT201006007518

PATIENT

DRUGS (2)
  1. GEMZAR [Suspect]
     Indication: BLADDER CANCER
     Route: 065
  2. CISPLATIN [Concomitant]
     Indication: BLADDER CANCER
     Dosage: 100 MG/M2, DAY 1 AND 22
     Route: 065

REACTIONS (1)
  - DRUG TOXICITY [None]
